FAERS Safety Report 25141739 (Version 1)
Quarter: 2025Q1

REPORT INFORMATION
  Report Type: Spontaneous
  Country: US (occurrence: US)
  Receive Date: 20250331
  Receipt Date: 20250331
  Transmission Date: 20250409
  Serious: No
  Sender: EVOLUS, INC.
  Company Number: US-Evolus, Inc.-2024EV000057

PATIENT

DRUGS (2)
  1. JEUVEAU [Suspect]
     Active Substance: PRABOTULINUMTOXINA-XVFS
     Indication: Skin wrinkling
     Dates: start: 20231207, end: 20231207
  2. JEUVEAU [Suspect]
     Active Substance: PRABOTULINUMTOXINA-XVFS
     Indication: Product use in unapproved indication
     Dates: start: 20240131, end: 20240131

REACTIONS (4)
  - Injection site papule [Recovering/Resolving]
  - Patient dissatisfaction with treatment [Unknown]
  - Off label use [Unknown]
  - Injection site pain [Unknown]

NARRATIVE: CASE EVENT DATE: 20231207
